FAERS Safety Report 8539709-7 (Version None)
Quarter: 2012Q3

REPORT INFORMATION
  Report Type: 
  Country: None (occurrence: None)
  Receive Date: 20120726
  Receipt Date: 20120111
  Transmission Date: 20120928
  Serious: No
  Sender: FDA-Public Use
  Company Number: US-ASTRAZENECA-2009SE27990

PATIENT
  Age: 35 Year
  Sex: Female
  Weight: 102.5 kg

DRUGS (8)
  1. FIORICET [Concomitant]
     Indication: HEADACHE
  2. SEROQUEL [Suspect]
     Route: 048
  3. XANAX [Concomitant]
     Indication: ANXIOLYTIC THERAPY
  4. BACTRIM [Concomitant]
     Indication: PAIN IN EXTREMITY
  5. GABAPENTIN [Concomitant]
     Indication: NEUROPATHY PERIPHERAL
  6. SEROQUEL [Suspect]
     Indication: BIPOLAR DISORDER
     Route: 048
  7. SEROQUEL [Suspect]
     Route: 048
  8. SEROQUEL [Suspect]
     Route: 048
     Dates: start: 20050101

REACTIONS (6)
  - INSOMNIA [None]
  - MALAISE [None]
  - ADVERSE DRUG REACTION [None]
  - STRESS [None]
  - DRUG DOSE OMISSION [None]
  - WEIGHT INCREASED [None]
